FAERS Safety Report 25346448 (Version 1)
Quarter: 2025Q2

REPORT INFORMATION
  Report Type: Other
  Country: US (occurrence: US)
  Receive Date: 20250522
  Receipt Date: 20250522
  Transmission Date: 20250716
  Serious: Yes (Death, Other)
  Sender: INNOGENIX, LLC
  Company Number: US-Innogenix, LLC-2177255

PATIENT
  Age: 58 Year
  Sex: Male

DRUGS (4)
  1. METRONIDAZOLE [Suspect]
     Active Substance: METRONIDAZOLE
     Indication: Klebsiella infection
  2. METRONIDAZOLE [Suspect]
     Active Substance: METRONIDAZOLE
     Indication: Escherichia infection
  3. CEFTRIAXONE [Suspect]
     Active Substance: CEFTRIAXONE
  4. AMOXICILLIN AND CLAVULANATE POTASSIUM [Suspect]
     Active Substance: AMOXICILLIN\CLAVULANATE POTASSIUM

REACTIONS (3)
  - Cholangitis sclerosing [Fatal]
  - Drug-induced liver injury [Fatal]
  - Hepatic cirrhosis [Fatal]
